FAERS Safety Report 7207186-4 (Version None)
Quarter: 2011Q1

REPORT INFORMATION
  Report Type: 
  Country: None (occurrence: None)
  Receive Date: 20110103
  Receipt Date: 20101222
  Transmission Date: 20110831
  Serious: Yes (Other)
  Sender: FDA-Public Use
  Company Number: BR-ELI_LILLY_AND_COMPANY-BR201012005721

PATIENT
  Sex: Male
  Weight: 75 kg

DRUGS (6)
  1. FLUOXETINA [Concomitant]
     Dosage: UNK, UNKNOWN
     Route: 065
  2. BYETTA [Suspect]
     Indication: TYPE 2 DIABETES MELLITUS
     Dosage: 10 UG, 2/D
     Route: 065
     Dates: start: 20100101
  3. CLOPIDOGREL [Concomitant]
     Dosage: UNK, UNKNOWN
     Route: 065
  4. AMLODIPINE [Concomitant]
     Dosage: UNK, UNKNOWN
     Route: 065
  5. METFORMIN HYDROCHLORIDE [Concomitant]
     Dosage: UNK, UNKNOWN
     Route: 065
  6. AAS [Concomitant]
     Dosage: UNK, UNKNOWN
     Route: 065

REACTIONS (7)
  - GAIT DISTURBANCE [None]
  - NAUSEA [None]
  - DECREASED APPETITE [None]
  - FALL [None]
  - WEIGHT DECREASED [None]
  - LABYRINTHITIS [None]
  - ASTHENIA [None]
